FAERS Safety Report 6305504-2 (Version None)
Quarter: 2009Q3

REPORT INFORMATION
  Report Type: 
  Country: None (occurrence: None)
  Receive Date: 20090811
  Receipt Date: 20090805
  Transmission Date: 20100115
  Serious: Yes (Other)
  Sender: FDA-Public Use
  Company Number: US-JNJCH-2009021295

PATIENT
  Sex: Female

DRUGS (1)
  1. PURELL ORIGINAL [Suspect]
     Indication: DRUG USE FOR UNKNOWN INDICATION
     Dosage: TEXT:UNSPECIFIED
     Route: 061

REACTIONS (6)
  - ASTHMA [None]
  - DISCOMFORT [None]
  - HEADACHE [None]
  - NAUSEA [None]
  - PERFUME SENSITIVITY [None]
  - SINUSITIS [None]
